FAERS Safety Report 16129863 (Version 1)
Quarter: 2019Q1

REPORT INFORMATION
  Report Type: Spontaneous
  Country: US (occurrence: US)
  Receive Date: 20190328
  Receipt Date: 20190328
  Transmission Date: 20190418
  Serious: No
  Sender: FDA-Public Use
  Company Number: US-EX USA HOLDINGS-EXHL20192197

PATIENT
  Age: 40 Year
  Sex: Male

DRUGS (2)
  1. BENZNIDAZOLE. [Suspect]
     Active Substance: BENZNIDAZOLE
     Indication: AMERICAN TRYPANOSOMIASIS
     Dosage: 1.5 TABLETS
     Route: 048
     Dates: start: 20190311
  2. BENZNIDAZOLE. [Suspect]
     Active Substance: BENZNIDAZOLE
     Dosage: 1.5 TABLETS
     Route: 048
     Dates: start: 201902, end: 20190307

REACTIONS (4)
  - Rash erythematous [Not Recovered/Not Resolved]
  - Pruritus [Not Recovered/Not Resolved]
  - Product use issue [None]
  - Therapy cessation [None]

NARRATIVE: CASE EVENT DATE: 20190307
